FAERS Safety Report 13587395 (Version 13)
Quarter: 2019Q2

REPORT INFORMATION
  Report Type: Report from Study
  Country: US (occurrence: US)
  Receive Date: 20170526
  Receipt Date: 20190627
  Transmission Date: 20190711
  Serious: Yes (Life-Threatening, Hospitalization, Other)
  Sender: FDA-Public Use
  Company Number: US-ACTELION-A-US2015-129065

PATIENT
  Age: 58 Year
  Sex: Male
  Weight: 78.3 kg

DRUGS (29)
  1. CLARITIN [Concomitant]
     Active Substance: LORATADINE
     Dosage: UNK
     Dates: start: 20170515
  2. ASPIRIN. [Concomitant]
     Active Substance: ASPIRIN
     Dosage: 325 MG, QD
     Route: 048
  3. ACETAMINOPHEN. [Concomitant]
     Active Substance: ACETAMINOPHEN
     Dosage: UNK
     Dates: start: 20170515
  4. CEFTRIAXONE. [Concomitant]
     Active Substance: CEFTRIAXONE
     Dosage: UNK
     Dates: start: 20170515
  5. HEPARIN [Concomitant]
     Active Substance: HEPARIN SODIUM
     Dosage: UNK
     Dates: start: 20170515
  6. OPSUMIT [Suspect]
     Active Substance: MACITENTAN
     Dosage: 10 MG
     Route: 048
  7. PROPOFOL. [Concomitant]
     Active Substance: PROPOFOL
     Dosage: UNK
     Dates: start: 20170515
  8. FUROSEMIDE. [Concomitant]
     Active Substance: FUROSEMIDE
     Dosage: 20 MG, QD
     Route: 048
  9. PANTOPRAZOLE [Concomitant]
     Active Substance: PANTOPRAZOLE
  10. OPSUMIT [Suspect]
     Active Substance: MACITENTAN
     Indication: PULMONARY ARTERIAL HYPERTENSION
     Dosage: 10 MG, QD
     Route: 048
     Dates: start: 20151028
  11. ENOXAPARIN [Concomitant]
     Active Substance: ENOXAPARIN
  12. OMEPRAZOLE. [Concomitant]
     Active Substance: OMEPRAZOLE
     Dosage: UNK
     Dates: start: 20170515
  13. DEXTROMETHORPHAN HBR + GUAIFENESIN [Concomitant]
     Active Substance: DEXTROMETHORPHAN HYDROBROMIDE\GUAIFENESIN
  14. RANITIDINE. [Concomitant]
     Active Substance: RANITIDINE
  15. REVATIO [Concomitant]
     Active Substance: SILDENAFIL CITRATE
     Dosage: 20 MG, TID
     Route: 048
  16. TAMSULOSIN [Concomitant]
     Active Substance: TAMSULOSIN
     Dosage: UNK
     Dates: start: 20170515
  17. FAMOTIDINE. [Concomitant]
     Active Substance: FAMOTIDINE
     Dosage: 40 MG, QD
     Route: 048
  18. BENZONATATE. [Concomitant]
     Active Substance: BENZONATATE
  19. FLONASE [Concomitant]
     Active Substance: FLUTICASONE PROPIONATE
     Dosage: UNK
     Dates: start: 20170515
  20. FENTANYL. [Concomitant]
     Active Substance: FENTANYL
     Dosage: UNK
     Dates: start: 20170515
  21. ALBUTEROL. [Concomitant]
     Active Substance: ALBUTEROL
  22. FINASTERIDE. [Concomitant]
     Active Substance: FINASTERIDE
  23. MIRALAX [Concomitant]
     Active Substance: POLYETHYLENE GLYCOL 3350
  24. THIAMINE. [Concomitant]
     Active Substance: THIAMINE
  25. BACLOFEN. [Concomitant]
     Active Substance: BACLOFEN
     Dosage: 10 MG, QPM
     Dates: start: 20170515
  26. LASIX [Concomitant]
     Active Substance: FUROSEMIDE
     Dosage: UNK
     Dates: start: 20170515
  27. IPRATROPIUM [Concomitant]
     Active Substance: IPRATROPIUM
  28. DOCUSATE [Concomitant]
     Active Substance: DOCUSATE
  29. FOLIC ACID. [Concomitant]
     Active Substance: FOLIC ACID

REACTIONS (29)
  - Syncope [Unknown]
  - Fall [Recovered/Resolved]
  - Spinal fracture [Recovered/Resolved]
  - Pulmonary hypertension [Unknown]
  - Gastrooesophageal reflux disease [Unknown]
  - Blood bilirubin increased [Unknown]
  - Unevaluable event [Recovering/Resolving]
  - Thinking abnormal [Unknown]
  - Dry mouth [Unknown]
  - Productive cough [Unknown]
  - Cough [Unknown]
  - Mental status changes [Recovered/Resolved]
  - Loss of consciousness [Recovered/Resolved]
  - Dizziness [Unknown]
  - Hospitalisation [Unknown]
  - Cardiac failure acute [Recovered/Resolved with Sequelae]
  - Restless legs syndrome [Unknown]
  - Blood alkaline phosphatase increased [Unknown]
  - Aspartate aminotransferase increased [Recovered/Resolved]
  - Peripheral swelling [Unknown]
  - Erythema [Unknown]
  - Clavicle fracture [Recovered/Resolved]
  - Lacrimation increased [Unknown]
  - Epistaxis [Unknown]
  - Respiratory failure [Recovered/Resolved]
  - Condition aggravated [Recovered/Resolved with Sequelae]
  - Cellulitis [Unknown]
  - Facial bones fracture [Recovered/Resolved]
  - Fluid overload [Recovering/Resolving]

NARRATIVE: CASE EVENT DATE: 20170515
